FAERS Safety Report 6608266-4 (Version None)
Quarter: 2010Q1

REPORT INFORMATION
  Report Type: 
  Country: None (occurrence: None)
  Receive Date: 20100301
  Receipt Date: 20100222
  Transmission Date: 20100710
  Serious: Yes (Other)
  Sender: FDA-Public Use
  Company Number: GB-ROCHE-686669

PATIENT
  Age: 55 Year
  Sex: Male

DRUGS (3)
  1. CAPECITABINE [Suspect]
     Dosage: TAKEN FOR 14 DAYS EVERY 3 WEEKS
     Route: 065
  2. CAPECITABINE [Suspect]
     Route: 065
  3. CAPECITABINE [Suspect]
     Route: 065

REACTIONS (4)
  - FATIGUE [None]
  - PALMAR-PLANTAR ERYTHRODYSAESTHESIA SYNDROME [None]
  - SICKLE CELL ANAEMIA WITH CRISIS [None]
  - STOMATITIS [None]
